FAERS Safety Report 16038966 (Version 1)
Quarter: 2019Q1

REPORT INFORMATION
  Report Type: Spontaneous
  Country: DE (occurrence: DE)
  Receive Date: 20190306
  Receipt Date: 20190306
  Transmission Date: 20190418
  Serious: Yes (Other)
  Sender: FDA-Public Use
  Company Number: PHHY2019DE046641

PATIENT
  Sex: Female

DRUGS (2)
  1. COSENTYX [Suspect]
     Active Substance: SECUKINUMAB
     Indication: PRODUCT USED FOR UNKNOWN INDICATION
     Dosage: UNK
     Route: 065
  2. COPAXONE [Suspect]
     Active Substance: GLATIRAMER ACETATE
     Indication: MULTIPLE SCLEROSIS
     Dosage: 120 MG, QW
     Route: 065
     Dates: start: 20160201

REACTIONS (12)
  - Immune system disorder [Unknown]
  - Tinea pedis [Unknown]
  - Viral skin infection [Unknown]
  - Fructose intolerance [Unknown]
  - Colitis microscopic [Unknown]
  - Depression [Unknown]
  - Pharyngitis bacterial [Unknown]
  - Epigastric discomfort [Unknown]
  - Cellulitis [Unknown]
  - Bartholinitis [Unknown]
  - Rotator cuff syndrome [Unknown]
  - Somatic symptom disorder [Unknown]

NARRATIVE: CASE EVENT DATE: 201602
